FAERS Safety Report 6421627-1 (Version None)
Quarter: 2009Q4

REPORT INFORMATION
  Report Type: 
  Country: None (occurrence: None)
  Receive Date: 20091030
  Receipt Date: 20091020
  Transmission Date: 20100525
  Serious: Yes (Other)
  Sender: FDA-Public Use
  Company Number: US-WATSON-2009-08855

PATIENT
  Sex: Female

DRUGS (1)
  1. GELNIQUE (WATSON LABORATORIES) [Suspect]
     Indication: HYPERTONIC BLADDER
     Dosage: APPLY 1 SACHET, DAILY
     Route: 061
     Dates: start: 20090801, end: 20091019

REACTIONS (5)
  - ABDOMINAL PAIN [None]
  - ALANINE AMINOTRANSFERASE INCREASED [None]
  - ASPARTATE AMINOTRANSFERASE INCREASED [None]
  - BLOOD ALKALINE PHOSPHATASE INCREASED [None]
  - CHEST DISCOMFORT [None]
